FAERS Safety Report 18729416 (Version 1)
Quarter: 2021Q1

REPORT INFORMATION
  Report Type: Spontaneous
  Country: US (occurrence: US)
  Receive Date: 20210111
  Receipt Date: 20210111
  Transmission Date: 20210419
  Serious: Yes (Other)
  Sender: FDA-Public Use
  Company Number: None

PATIENT
  Age: 22 Year
  Sex: Female
  Weight: 85.5 kg

DRUGS (1)
  1. EMGALITY [Suspect]
     Active Substance: GALCANEZUMAB-GNLM
     Indication: MIGRAINE
     Dosage: ?          QUANTITY:2 INJECTION(S);?
     Dates: start: 20210110, end: 20210111

REACTIONS (5)
  - Rash erythematous [None]
  - Dizziness [None]
  - Injection site pruritus [None]
  - Chest discomfort [None]
  - Injection site pain [None]

NARRATIVE: CASE EVENT DATE: 20210111
